FAERS Safety Report 8826990 (Version 1)
Quarter: 2012Q4

REPORT INFORMATION
  Report Type: Report from Study
  Country: GR (occurrence: GR)
  Receive Date: 20121007
  Receipt Date: 20121007
  Transmission Date: 20130627
  Serious: Yes (Life-Threatening, Hospitalization)
  Sender: FDA-Public Use
  Company Number: GR-ELI_LILLY_AND_COMPANY-GR201209006830

PATIENT
  Sex: Female

DRUGS (7)
  1. TERIPARATIDE [Suspect]
     Indication: OSTEOPOROSIS
     Dosage: 20 ug, qd
     Route: 058
     Dates: start: 20110418, end: 20120918
  2. RAMIPRIL/HYDROCHLOORTHIAZIDE [Concomitant]
     Indication: HYPERTENSION
     Dosage: UNK
  3. METHYLPREDNISOLONE [Concomitant]
     Indication: WEGENER^S GRANULOMATOSIS
     Dosage: 4 mg, UNK
  4. LEVOTHYROXINE [Concomitant]
     Indication: POST PROCEDURAL HYPOTHYROIDISM
     Dosage: 0.1 mg, UNK
  5. METOPROLOL [Concomitant]
     Indication: HYPERTENSION
     Dosage: 50 mg, UNK
  6. ATORVASTATIN [Concomitant]
     Indication: HYPERCHOLESTEROLAEMIA
     Dosage: 20 mg, UNK
  7. CALCIUM CARBONATE W/VITAMIN D      /00944201/ [Concomitant]
     Indication: OSTEOPOROSIS
     Dosage: UNK

REACTIONS (1)
  - Lower gastrointestinal haemorrhage [Recovered/Resolved]
